FAERS Safety Report 11160293 (Version 1)
Quarter: 2015Q2

REPORT INFORMATION
  Report Type: Report from Study
  Country: BR (occurrence: BR)
  Receive Date: 20150603
  Receipt Date: 20150603
  Transmission Date: 20150821
  Serious: Yes (Death)
  Sender: FDA-Public Use
  Company Number: PHHY2015BR066665

PATIENT
  Age: 66 Year
  Sex: Female
  Weight: 73.85 kg

DRUGS (1)
  1. LDK378 [Suspect]
     Active Substance: CERITINIB
     Indication: PRODUCT USED FOR UNKNOWN INDICATION
     Dosage: 600 MG, PER DAY
     Route: 048
     Dates: start: 20150212, end: 20150305

REACTIONS (1)
  - Death [Fatal]

NARRATIVE: CASE EVENT DATE: 20150313
